FAERS Safety Report 26153479 (Version 2)
Quarter: 2025Q4

REPORT INFORMATION
  Report Type: Report from Study
  Country: AR (occurrence: AR)
  Receive Date: 20251214
  Receipt Date: 20251217
  Transmission Date: 20260119
  Serious: No
  Sender: ABBVIE
  Company Number: AR-ABBVIE-6585892

PATIENT
  Age: 64 Year
  Sex: Male

DRUGS (1)
  1. SKYRIZI [Suspect]
     Active Substance: RISANKIZUMAB-RZAA
     Indication: Psoriasis
     Dosage: STRENGTH- 150MG
     Route: 058
     Dates: start: 20230916

REACTIONS (1)
  - Mycobacterium tuberculosis complex test positive [Not Recovered/Not Resolved]

NARRATIVE: CASE EVENT DATE: 20251105
